FAERS Safety Report 20773125 (Version 3)
Quarter: 2022Q3

REPORT INFORMATION
  Report Type: Spontaneous
  Country: US (occurrence: US)
  Receive Date: 20220502
  Receipt Date: 20220927
  Transmission Date: 20221027
  Serious: Yes (Other)
  Sender: FDA-Public Use
  Company Number: US-PFIZER INC-202200614390

PATIENT
  Age: 38 Year
  Sex: Female

DRUGS (3)
  1. CIPROFLOXACIN [Suspect]
     Active Substance: CIPROFLOXACIN
     Indication: Acute generalised exanthematous pustulosis
     Dosage: UNK
  2. AZITHROMYCIN [Suspect]
     Active Substance: AZITHROMYCIN
     Indication: Acute generalised exanthematous pustulosis
     Dosage: UNK
  3. SULFAMETHOXAZOLE\TRIMETHOPRIM [Suspect]
     Active Substance: SULFAMETHOXAZOLE\TRIMETHOPRIM
     Indication: Acute generalised exanthematous pustulosis
     Dosage: UNK

REACTIONS (4)
  - Neutrophilia [Recovered/Resolved]
  - Eosinophilia [Recovered/Resolved]
  - Hypertransaminasaemia [Recovered/Resolved]
  - Acute generalised exanthematous pustulosis [Unknown]
